FAERS Safety Report 20095893 (Version 1)
Quarter: 2021Q4

REPORT INFORMATION
  Report Type: Spontaneous
  Country: US (occurrence: US)
  Receive Date: 20211122
  Receipt Date: 20211122
  Transmission Date: 20220303
  Serious: No
  Sender: FDA-Public Use
  Company Number: US-00018

PATIENT
  Age: 62 Year
  Sex: Male
  Weight: 126.10 kg

DRUGS (4)
  1. PEPAXTO [Suspect]
     Active Substance: MELPHALAN FLUFENAMIDE
     Indication: Plasma cell myeloma
     Route: 065
     Dates: start: 20210408
  2. NEUPOGEN [Suspect]
     Active Substance: FILGRASTIM
     Indication: Product used for unknown indication
     Route: 065
  3. PHENERGAN [Concomitant]
     Active Substance: PROMETHAZINE HYDROCHLORIDE
  4. NEULASTA [Concomitant]
     Active Substance: PEGFILGRASTIM

REACTIONS (5)
  - Pain [Recovered/Resolved]
  - Pyrexia [Recovered/Resolved]
  - Feeling abnormal [Recovered/Resolved]
  - Nasopharyngitis [Recovered/Resolved]
  - Myalgia [Recovered/Resolved]

NARRATIVE: CASE EVENT DATE: 20210409
